FAERS Safety Report 14831449 (Version 1)
Quarter: 2018Q2

REPORT INFORMATION
  Report Type: Report from Study
  Country: None (occurrence: GB)
  Receive Date: 20180501
  Receipt Date: 20180501
  Transmission Date: 20180711
  Serious: Yes (Hospitalization, Other)
  Sender: FDA-Public Use
  Company Number: GB-ABBVIE-18K-167-2338687-00

PATIENT
  Age: 47 Year
  Sex: Female
  Weight: 61.7 kg

DRUGS (3)
  1. HUMIRA [Suspect]
     Active Substance: ADALIMUMAB
     Route: 058
     Dates: start: 20180425
  2. TRIMOVATE [Concomitant]
     Active Substance: CLOBETASONE BUTYRATE\NYSTATIN\OXYTETRACYCLINE CALCIUM
     Indication: PRODUCT USED FOR UNKNOWN INDICATION
     Dates: start: 20170615
  3. HUMIRA [Suspect]
     Active Substance: ADALIMUMAB
     Indication: PSORIASIS
     Route: 058
     Dates: start: 20130401, end: 20180221

REACTIONS (8)
  - Pneumothorax [Recovered/Resolved]
  - Scapula fracture [Recovered/Resolved]
  - Rib fracture [Recovered/Resolved]
  - Staphylococcal bacteraemia [Unknown]
  - Splenic rupture [Recovered/Resolved]
  - Abdominal pain [Recovered/Resolved]
  - Emphysema [Recovered/Resolved]
  - Fall [Recovered/Resolved]

NARRATIVE: CASE EVENT DATE: 2018
